FAERS Safety Report 8524348-4 (Version None)
Quarter: 2012Q3

REPORT INFORMATION
  Report Type: 
  Country: None (occurrence: None)
  Receive Date: 20120720
  Receipt Date: 20120709
  Transmission Date: 20120928
  Serious: Yes (Life-Threatening)
  Sender: FDA-Public Use
  Company Number: MX-PFIZER INC-2012165109

PATIENT
  Sex: Male

DRUGS (1)
  1. SUNITINIB MALATE [Suspect]
     Dosage: 25 MG, 1X/DAY
     Route: 048
     Dates: start: 20090212

REACTIONS (1)
  - MYOCARDIAL INFARCTION [None]
